FAERS Safety Report 8986687 (Version 2)
Quarter: 2013Q1

REPORT INFORMATION
  Report Type: Report from Study
  Country: JP (occurrence: JP)
  Receive Date: 20121226
  Receipt Date: 20130128
  Transmission Date: 20140127
  Serious: Yes (Hospitalization)
  Sender: FDA-Public Use
  Company Number: JP-ROCHE-1171987

PATIENT
  Sex: Male
  Weight: 81 kg

DRUGS (6)
  1. PEG-INTERFERON ALFA 2A [Suspect]
     Indication: HEPATIC CIRRHOSIS
     Route: 058
     Dates: start: 20111221, end: 20120606
  2. PEG-INTERFERON ALFA 2A [Suspect]
     Route: 058
     Dates: start: 20120627, end: 20121128
  3. RIBAVIRIN [Suspect]
     Indication: HEPATIC CIRRHOSIS
     Route: 048
     Dates: start: 20111221, end: 20121128
  4. CYANOCOBALAMIN [Concomitant]
     Dosage: 1-2 DROPS X 3-4 TIMES/DAY, TIRED EYE
     Route: 047
  5. GATIFLO [Concomitant]
     Route: 047
     Dates: start: 20120224, end: 20120426
  6. LUCENTIS [Concomitant]
     Route: 031
     Dates: start: 20120227, end: 20120319

REACTIONS (2)
  - Fall [Unknown]
  - Subdural haematoma [Unknown]
